FAERS Safety Report 5804762-8 (Version None)
Quarter: 2008Q3

REPORT INFORMATION
  Report Type: 
  Country: None (occurrence: None)
  Receive Date: 20080707
  Receipt Date: 20080110
  Transmission Date: 20090109
  Serious: Yes (Other)
  Sender: FDA-Public Use
  Company Number: 540705

PATIENT
  Age: 50 Year
  Sex: Female

DRUGS (3)
  1. CELLCEPT [Suspect]
     Indication: INTERSTITIAL LUNG DISEASE
     Dosage: 1000 MG 2 PER DAY; 4 DAYS
  2. STEROID NOS (STEROID NOS) [Concomitant]
  3. UNSPECIFIED MEDICATIONS (GENERIC UNKNOWN) [Concomitant]

REACTIONS (2)
  - CONTUSION [None]
  - HAEMOPTYSIS [None]
